FAERS Safety Report 6123890-3 (Version None)
Quarter: 2009Q1

REPORT INFORMATION
  Report Type: 
  Country: None (occurrence: None)
  Receive Date: 20090319
  Receipt Date: 20090310
  Transmission Date: 20090719
  Serious: Yes (Hospitalization)
  Sender: FDA-Public Use
  Company Number: US-BIOGENIDEC-2008BI033537

PATIENT
  Age: 72 Year
  Sex: Female
  Weight: 68 kg

DRUGS (2)
  1. AVONEX [Suspect]
     Indication: MULTIPLE SCLEROSIS
     Route: 030
     Dates: start: 19980101
  2. AVONEX [Suspect]
     Route: 030

REACTIONS (6)
  - CEREBRAL HAEMORRHAGE [None]
  - DIZZINESS [None]
  - FALL [None]
  - HEAD INJURY [None]
  - HEADACHE [None]
  - SUBDURAL HAEMATOMA [None]
